FAERS Safety Report 5325439-1 (Version None)
Quarter: 2007Q2

REPORT INFORMATION
  Report Type: 
  Country: None (occurrence: None)
  Receive Date: 20070509
  Receipt Date: 20070430
  Transmission Date: 20071010
  Serious: Yes (Hospitalization)
  Sender: FDA-Public Use
  Company Number: S07-USA-01753-01

PATIENT
  Age: 90 Year
  Sex: Female

DRUGS (8)
  1. LEXAPRO [Suspect]
     Indication: ANXIETY
     Dosage: 10 MG QD PO
     Route: 048
     Dates: start: 20070420, end: 20070422
  2. LEXAPRO [Suspect]
     Indication: DEPRESSION
     Dosage: 10 MG QD PO
     Route: 048
     Dates: start: 20070420, end: 20070422
  3. LEXAPRO [Suspect]
     Indication: ANXIETY
     Dosage: 5  MG QD PO
     Route: 048
     Dates: start: 20070423, end: 20070423
  4. LEXAPRO [Suspect]
     Indication: DEPRESSION
     Dosage: 5  MG QD PO
     Route: 048
     Dates: start: 20070423, end: 20070423
  5. METOPROLOL SUCCINATE [Concomitant]
  6. ISOSORBIDE [Concomitant]
  7. CARDIZEM [Concomitant]
  8. SYNTHROID [Concomitant]

REACTIONS (10)
  - ANXIETY [None]
  - ASTHENIA [None]
  - CONDITION AGGRAVATED [None]
  - CONSTIPATION [None]
  - DEHYDRATION [None]
  - DIZZINESS [None]
  - FEELING HOT [None]
  - INSOMNIA [None]
  - NAUSEA [None]
  - ORTHOSTATIC HYPOTENSION [None]
